FAERS Safety Report 7866121-6 (Version None)
Quarter: 2011Q4

REPORT INFORMATION
  Report Type: 
  Country: None (occurrence: None)
  Receive Date: 20111028
  Receipt Date: 20111024
  Transmission Date: 20120403
  Serious: Yes (Other)
  Sender: FDA-Public Use
  Company Number: US-BAYER-201040975NA

PATIENT
  Age: 30 Year
  Sex: Female

DRUGS (9)
  1. BETASERON [Suspect]
     Dosage: 2 MIU, QOD
     Route: 058
     Dates: start: 20110917
  2. BETASERON [Suspect]
     Dosage: 2 MIU, QOD
     Route: 058
     Dates: start: 20110101, end: 20110115
  3. BETASERON [Suspect]
     Dosage: 8 MIU, UNK
     Route: 058
     Dates: start: 20110131, end: 20110401
  4. IRON [IRON] [Suspect]
     Indication: MINERAL SUPPLEMENTATION
     Dosage: UNK
     Dates: start: 20110101
  5. BETASERON [Suspect]
     Indication: MULTIPLE SCLEROSIS
     Route: 058
     Dates: start: 20090803, end: 20100920
  6. BETASERON [Suspect]
     Dosage: UNK
     Route: 058
     Dates: start: 20110702, end: 20110708
  7. BETASERON [Suspect]
     Dosage: UNK
     Route: 058
     Dates: start: 20110717, end: 20110722
  8. BETASERON [Suspect]
     Dosage: UNK
     Route: 058
     Dates: start: 20110826, end: 20110828
  9. BETASERON [Suspect]
     Dosage: 4 MIU, QOD
     Route: 058

REACTIONS (27)
  - NAUSEA [None]
  - EMOTIONAL DISORDER [None]
  - INJECTION SITE PRURITUS [None]
  - BURNING SENSATION [None]
  - MUSCLE SPASMS [None]
  - ABDOMINAL PAIN [None]
  - VAGINAL HAEMORRHAGE [None]
  - SENSATION OF HEAVINESS [None]
  - INJECTION SITE HAEMATOMA [None]
  - INJECTION SITE PAIN [None]
  - MEMORY IMPAIRMENT [None]
  - URINARY INCONTINENCE [None]
  - AGITATION [None]
  - HEADACHE [None]
  - INJECTION SITE INDURATION [None]
  - MULTIPLE SCLEROSIS [None]
  - HYPOAESTHESIA [None]
  - IRRITABILITY [None]
  - PARAESTHESIA [None]
  - RHINORRHOEA [None]
  - CONSTIPATION [None]
  - PAIN IN EXTREMITY [None]
  - FEELING HOT [None]
  - INJECTION SITE ERYTHEMA [None]
  - NEPHROLITHIASIS [None]
  - VOMITING [None]
  - INJECTION SITE RASH [None]
